FAERS Safety Report 7638299-0 (Version None)
Quarter: 2011Q3

REPORT INFORMATION
  Report Type: 
  Country: None (occurrence: None)
  Receive Date: 20110727
  Receipt Date: 20110727
  Transmission Date: 20111222
  Serious: No
  Sender: FDA-Public Use
  Company Number: None

PATIENT
  Age: 52 Year
  Sex: Female
  Weight: 58.967 kg

DRUGS (1)
  1. AVAPRO [Suspect]
     Indication: BLOOD PRESSURE INCREASED
     Dosage: 75 MILIGRAMS
     Route: 048
     Dates: start: 20110430, end: 20110519

REACTIONS (6)
  - ERYTHEMA [None]
  - FATIGUE [None]
  - FEELING ABNORMAL [None]
  - BURNING SENSATION [None]
  - PAIN [None]
  - MALAISE [None]
